FAERS Safety Report 24754923 (Version 1)
Quarter: 2024Q4

REPORT INFORMATION
  Report Type: Spontaneous
  Country: CO (occurrence: CO)
  Receive Date: 20241219
  Receipt Date: 20241219
  Transmission Date: 20250115
  Serious: Yes (Other)
  Sender: AMGEN
  Company Number: CO-AMGEN-COLSP2024247093

PATIENT
  Age: 72 Year
  Sex: Female

DRUGS (1)
  1. ROMOSOZUMAB [Suspect]
     Active Substance: ROMOSOZUMAB
     Indication: Osteoporosis
     Dosage: UNK UNK, QMO
     Route: 065

REACTIONS (1)
  - Immune thrombocytopenia [Recovered/Resolved]
